FAERS Safety Report 10368999 (Version 1)
Quarter: 2014Q3

REPORT INFORMATION
  Report Type: Spontaneous
  Country: DE (occurrence: DE)
  Receive Date: 20140807
  Receipt Date: 20140807
  Transmission Date: 20150326
  Serious: Yes (Hospitalization)
  Sender: FDA-Public Use
  Company Number: DE-BAYER-2014-118354

PATIENT
  Age: 56 Year
  Sex: Male

DRUGS (1)
  1. ULTRAGRAF [Suspect]
     Active Substance: IOPROMIDE
     Indication: IMAGING PROCEDURE
     Dosage: 100 ML, ONCE

REACTIONS (3)
  - Cardiovascular disorder [Unknown]
  - Vomiting [Unknown]
  - Blood pressure decreased [Unknown]
